FAERS Safety Report 9394350 (Version 1)
Quarter: 2013Q3

REPORT INFORMATION
  Report Type: Spontaneous
  Country: DE (occurrence: DE)
  Receive Date: 20130711
  Receipt Date: 20130711
  Transmission Date: 20140515
  Serious: Yes (Hospitalization)
  Sender: FDA-Public Use
  Company Number: DE-009507513-1307DEU002207

PATIENT
  Age: 54 Year
  Sex: Male
  Weight: 65 kg

DRUGS (2)
  1. SIMVASTATIN [Suspect]
     Indication: HYPERCHOLESTEROLAEMIA
     Dosage: 20 MG, QD
     Route: 048
     Dates: start: 201210, end: 201305
  2. RAMIPRIL [Concomitant]
     Indication: HYPERTENSION
     Dosage: 5 UNITS NOT PROVIDED, UNK
     Route: 048
     Dates: start: 201210, end: 201305

REACTIONS (1)
  - Alveolitis allergic [Not Recovered/Not Resolved]
